FAERS Safety Report 5734279-0 (Version None)
Quarter: 2008Q2

REPORT INFORMATION
  Report Type: 
  Country: None (occurrence: None)
  Receive Date: 20080512
  Receipt Date: 20080409
  Transmission Date: 20081010
  Serious: No
  Sender: FDA-Public Use
  Company Number: US-BAYER-200710052BWH

PATIENT
  Age: 68 Year
  Sex: Male

DRUGS (6)
  1. LEVITRA [Suspect]
     Indication: ERECTILE DYSFUNCTION
     Dosage: TOTAL DAILY DOSE: 20 MG  UNIT DOSE: 20 MG
     Route: 048
     Dates: start: 20060414
  2. ASPIRIN [Concomitant]
  3. NIASPAN [Concomitant]
  4. LIBRIUM [Concomitant]
  5. ZANTAC [Concomitant]
  6. PRIVICIL [Concomitant]

REACTIONS (2)
  - DIZZINESS [None]
  - ERECTILE DYSFUNCTION [None]
